FAERS Safety Report 7906254-9 (Version None)
Quarter: 2011Q4

REPORT INFORMATION
  Report Type: 
  Country: None (occurrence: None)
  Receive Date: 20111110
  Receipt Date: 20100928
  Transmission Date: 20120403
  Serious: No
  Sender: FDA-Public Use
  Company Number: US-BAYER-201037567NA

PATIENT
  Sex: Female

DRUGS (1)
  1. MENOSTAR [Suspect]
     Indication: HORMONE REPLACEMENT THERAPY
     Dosage: 14 MCG/24HR, UNK
     Route: 062
     Dates: start: 20100701

REACTIONS (4)
  - MICTURITION URGENCY [None]
  - PRODUCT ADHESION ISSUE [None]
  - ABDOMINAL DISTENSION [None]
  - ADNEXA UTERI PAIN [None]
